FAERS Safety Report 7994358-4 (Version None)
Quarter: 2011Q4

REPORT INFORMATION
  Report Type: 
  Country: None (occurrence: None)
  Receive Date: 20111220
  Receipt Date: 20110830
  Transmission Date: 20120403
  Serious: No
  Sender: FDA-Public Use
  Company Number: US-GLAXOSMITHKLINE-A0942862A

PATIENT
  Age: 77 Year
  Sex: Female

DRUGS (4)
  1. SIMVASTATIN [Concomitant]
  2. SORIATANE [Suspect]
     Indication: LICHEN SCLEROSUS
     Dosage: 25MG PER DAY
     Route: 048
     Dates: start: 20110501
  3. VITAMIN D SUPPLEMENT [Concomitant]
  4. CALCITRIOL [Concomitant]

REACTIONS (12)
  - CONTUSION [None]
  - ERYTHEMA [None]
  - SLEEP DISORDER [None]
  - RASH [None]
  - SKIN EXFOLIATION [None]
  - PRURITUS [None]
  - FATIGUE [None]
  - ILL-DEFINED DISORDER [None]
  - PRODUCT QUALITY ISSUE [None]
  - NAIL DISORDER [None]
  - PAIN IN EXTREMITY [None]
  - HYPERAESTHESIA [None]
